FAERS Safety Report 4589647-X (Version None)
Quarter: 2005Q1

REPORT INFORMATION
  Report Type: 
  Country: None (occurrence: None)
  Receive Date: 20050223
  Receipt Date: 20040622
  Transmission Date: 20050727
  Serious: Yes (Hospitalization)
  Sender: FDA-Public Use
  Company Number: CA-ROCHE-371890

PATIENT
  Age: 56 Year
  Sex: Female
  Weight: 60 kg

DRUGS (7)
  1. CAPECITABINE [Suspect]
     Route: 048
     Dates: start: 20031209, end: 20040624
  2. OXALIPLATIN [Suspect]
     Route: 042
     Dates: start: 20031209, end: 20040624
  3. COUMADIN [Concomitant]
     Dosage: TAKEN AS DIRECTED.
     Dates: start: 20040314
  4. CENTRUM [Concomitant]
     Dates: start: 20031127
  5. TYLENOL REGULAR [Concomitant]
     Dosage: REPORTED AS: PRN.
  6. ONDANSETRON [Concomitant]
     Dates: start: 20031208, end: 20040529
  7. DECADRON [Concomitant]
     Dates: start: 20031208, end: 20040529

REACTIONS (4)
  - BACTERIURIA [None]
  - DISEASE PROGRESSION [None]
  - HAEMATURIA [None]
  - METASTASES TO BLADDER [None]
